FAERS Safety Report 20751183 (Version 51)
Quarter: 2025Q2

REPORT INFORMATION
  Report Type: Report from Study
  Country: US (occurrence: US)
  Receive Date: 20220426
  Receipt Date: 20250626
  Transmission Date: 20250716
  Serious: Yes (Hospitalization, Other)
  Sender: TAKEDA
  Company Number: US-TAKEDA-2022TUS027131

PATIENT
  Age: 9 Year
  Sex: Male
  Weight: 30 kg

DRUGS (42)
  1. HUMAN IMMUNOGLOBULIN G [Suspect]
     Active Substance: HUMAN IMMUNOGLOBULIN G
     Indication: Immunodeficiency common variable
     Dosage: 4 GRAM, 1/WEEK
     Dates: start: 20180207
  2. HUMAN IMMUNOGLOBULIN G [Suspect]
     Active Substance: HUMAN IMMUNOGLOBULIN G
     Dosage: 6 GRAM, 1/WEEK
  3. HUMAN IMMUNOGLOBULIN G [Suspect]
     Active Substance: HUMAN IMMUNOGLOBULIN G
     Dosage: 6 GRAM, 1/WEEK
     Dates: start: 20180828
  4. HUMAN IMMUNOGLOBULIN G [Suspect]
     Active Substance: HUMAN IMMUNOGLOBULIN G
     Dosage: 6 GRAM, 1/WEEK
  5. HUMAN IMMUNOGLOBULIN G [Suspect]
     Active Substance: HUMAN IMMUNOGLOBULIN G
     Dosage: 6 GRAM, 1/WEEK
  6. HUMAN IMMUNOGLOBULIN G [Suspect]
     Active Substance: HUMAN IMMUNOGLOBULIN G
     Dosage: 6 GRAM, 1/WEEK
  7. EPINEPHRINE [Concomitant]
     Active Substance: EPINEPHRINE
  8. ACETAMINOPHEN [Concomitant]
     Active Substance: ACETAMINOPHEN
  9. VITAMIN D3 [Concomitant]
     Active Substance: CHOLECALCIFEROL
  10. ALBUTEROL SULFATE [Concomitant]
     Active Substance: ALBUTEROL SULFATE
  11. LIDOCAINE [Concomitant]
     Active Substance: LIDOCAINE
  12. FLUTICASONE PROPIONATE [Concomitant]
     Active Substance: FLUTICASONE PROPIONATE
  13. MIRALAX [Concomitant]
     Active Substance: POLYETHYLENE GLYCOL 3350
  14. IBUPROFEN [Concomitant]
     Active Substance: IBUPROFEN
  15. OMEPRAZOLE [Concomitant]
     Active Substance: OMEPRAZOLE
  16. RESTASIS [Concomitant]
     Active Substance: CYCLOSPORINE
  17. DIPHENHYDRAMINE [Concomitant]
     Active Substance: DIPHENHYDRAMINE
  18. FAMOTIDINE [Concomitant]
     Active Substance: FAMOTIDINE
  19. B complex with vitamin c [Concomitant]
  20. POLYVINYL ALCOHOL [Concomitant]
     Active Substance: POLYVINYL ALCOHOL
  21. AMITRIPTYLINE HYDROCHLORIDE [Concomitant]
     Active Substance: AMITRIPTYLINE HYDROCHLORIDE
  22. SIMETHICONE (DIMETHICONE) [Concomitant]
     Active Substance: DIMETHICONE
  23. VALTREX [Concomitant]
     Active Substance: VALACYCLOVIR HYDROCHLORIDE
  24. TRIAMCINOLONE ACETONIDE [Concomitant]
     Active Substance: TRIAMCINOLONE ACETONIDE
  25. AZELASTINE HYDROCHLORIDE [Concomitant]
     Active Substance: AZELASTINE HYDROCHLORIDE
  26. HYDROCORTISONE [Concomitant]
     Active Substance: HYDROCORTISONE
  27. MONTELUKAST SODIUM [Concomitant]
     Active Substance: MONTELUKAST SODIUM
  28. PEPCID [Concomitant]
     Active Substance: FAMOTIDINE
  29. FLOVENT HFA [Concomitant]
     Active Substance: FLUTICASONE PROPIONATE
  30. AZITHROMYCIN [Concomitant]
     Active Substance: AZITHROMYCIN
  31. PULMICORT TURBUHALER [Concomitant]
     Active Substance: BUDESONIDE
  32. HYDROXYZINE HYDROCHLORIDE [Concomitant]
     Active Substance: HYDROXYZINE HYDROCHLORIDE
  33. FLUCELVAX QUADRIVALENT 2017/2018 (INFLUENZA A VIRUS A/DARWIN/11/2021 ( [Concomitant]
     Active Substance: INFLUENZA A VIRUS A/DARWIN/11/2021 (H3N2) ANTIGEN (MDCK CELL DERIVED, PROPIOLACTONE INACTIVATED)\INF
  34. GUAIFENESIN [Concomitant]
     Active Substance: GUAIFENESIN
  35. CLINDAMYCIN [Concomitant]
     Active Substance: CLINDAMYCIN
  36. FLUCELVAX NOS [Concomitant]
     Active Substance: INFLUENZA A VIRUS A/BRISBANE/10/2010 (H1N1) ANTIGEN (MDCK CELL DERIVED, PROPIOLACTONE INACTIVATED)\I
  37. HYDROXYZINE [Concomitant]
     Active Substance: HYDROXYZINE HYDROCHLORIDE
  38. FLUOROMETHOLONE [Concomitant]
     Active Substance: FLUOROMETHOLONE
  39. MELATONIN [Concomitant]
     Active Substance: MELATONIN
  40. CEPHALEXIN [Concomitant]
     Active Substance: CEPHALEXIN
  41. CYPROHEPTADINE HYDROCHLORIDE [Concomitant]
     Active Substance: CYPROHEPTADINE HYDROCHLORIDE
  42. DIPHENHYDRAMINE HYDROCHLORIDE [Concomitant]
     Active Substance: DIPHENHYDRAMINE HYDROCHLORIDE

REACTIONS (59)
  - Abdominal wall cyst [Unknown]
  - Autism spectrum disorder [Unknown]
  - Vascular device infection [Unknown]
  - Beta haemolytic streptococcal infection [Unknown]
  - Self-destructive behaviour [Unknown]
  - Infection [Recovered/Resolved]
  - Pharyngitis streptococcal [Unknown]
  - Multiple allergies [Unknown]
  - Ulcer [Unknown]
  - Conjunctivitis bacterial [Unknown]
  - Gastritis [Unknown]
  - Viral infection [Unknown]
  - Eye infection [Unknown]
  - Gastrointestinal disorder [Unknown]
  - Discharge [Recovered/Resolved]
  - Gastrointestinal infection [Unknown]
  - Ear infection [Recovered/Resolved]
  - Pharyngeal erythema [Unknown]
  - Behaviour disorder [Unknown]
  - Urinary tract infection [Unknown]
  - Urinary tract pain [Unknown]
  - Sinus congestion [Recovered/Resolved]
  - Tooth infection [Unknown]
  - Pustule [Unknown]
  - COVID-19 [Unknown]
  - Otorrhoea [Unknown]
  - Otitis media [Not Recovered/Not Resolved]
  - Reaction to colouring [Unknown]
  - Pharyngitis [Unknown]
  - Mouth ulceration [Recovered/Resolved]
  - Rhinitis [Recovered/Resolved]
  - Laryngitis [Unknown]
  - Periorbital swelling [Unknown]
  - Ocular hyperaemia [Unknown]
  - Streptococcus test positive [Unknown]
  - Illness [Unknown]
  - Bronchitis [Unknown]
  - Ear, nose and throat infection [Unknown]
  - Product dose omission issue [Unknown]
  - Inappropriate schedule of product administration [Unknown]
  - Nasopharyngitis [Unknown]
  - Aphthous ulcer [Unknown]
  - Herpes simplex [Unknown]
  - Liver disorder [Unknown]
  - Constipation [Unknown]
  - Irritability [Unknown]
  - Upper respiratory tract infection [Recovering/Resolving]
  - Sinusitis [Unknown]
  - Agitation [Unknown]
  - Influenza [Recovering/Resolving]
  - Epistaxis [Unknown]
  - Conjunctivitis [Unknown]
  - Rhinorrhoea [Unknown]
  - Oropharyngeal pain [Unknown]
  - Lymphadenopathy [Recovered/Resolved]
  - Abdominal pain [Unknown]
  - Pyrexia [Unknown]
  - Pruritus [Recovered/Resolved]
  - Urticaria [Recovered/Resolved]

NARRATIVE: CASE EVENT DATE: 20201201
